FAERS Safety Report 8494260-8 (Version None)
Quarter: 2012Q2

REPORT INFORMATION
  Report Type: 
  Country: None (occurrence: None)
  Receive Date: 20120628
  Receipt Date: 20120620
  Transmission Date: 20120825
  Serious: Yes (Other)
  Sender: FDA-Public Use
  Company Number: 2012POI058100002

PATIENT
  Age: 32 Year
  Sex: Female

DRUGS (2)
  1. AZATHIOPRINE [Suspect]
     Indication: PEMPHIGUS
     Dosage: 150 MG/DAY
  2. PREDNISONE [Suspect]
     Indication: PEMPHIGUS
     Dosage: 50 MG/DAY

REACTIONS (2)
  - IATROGENIC INJURY [None]
  - KAPOSI'S SARCOMA [None]
